FAERS Safety Report 8103562-6 (Version None)
Quarter: 2012Q1

REPORT INFORMATION
  Report Type: 
  Country: None (occurrence: None)
  Receive Date: 20120201
  Receipt Date: 20120130
  Transmission Date: 20120608
  Serious: No
  Sender: FDA-Public Use
  Company Number: PHEH2012US002618

PATIENT
  Sex: Female

DRUGS (4)
  1. DYAZIDE [Concomitant]
  2. EFFEXOR XR [Concomitant]
  3. TASIGNA [Suspect]
     Indication: CHRONIC MYELOID LEUKAEMIA
     Dosage: 300 MG, BID
     Route: 048
     Dates: start: 20110908
  4. MIRAPEX [Concomitant]

REACTIONS (1)
  - GENERAL PHYSICAL CONDITION ABNORMAL [None]
